FAERS Safety Report 5888293-5 (Version None)
Quarter: 2008Q3

REPORT INFORMATION
  Report Type: 
  Country: None (occurrence: None)
  Receive Date: 20080918
  Receipt Date: 20071127
  Transmission Date: 20090109
  Serious: Yes (Hospitalization)
  Sender: FDA-Public Use
  Company Number: IT-ROCHE-571043

PATIENT
  Sex: Female
  Weight: 57 kg

DRUGS (2)
  1. RIBAVIRIN [Suspect]
     Route: 065
     Dates: start: 20070620, end: 20070726
  2. PEG-INTRON [Suspect]
     Dosage: STRENGTH REPORTED AS 80.
     Route: 065
     Dates: start: 20070620, end: 20070726

REACTIONS (1)
  - UTERINE LEIOMYOMA [None]
